FAERS Safety Report 6964748-7 (Version None)
Quarter: 2010Q3

REPORT INFORMATION
  Report Type: 
  Country: None (occurrence: None)
  Receive Date: 20100903
  Receipt Date: 20100823
  Transmission Date: 20110219
  Serious: No
  Sender: FDA-Public Use
  Company Number: FI-US-EMD SERONO, INC.-7010712

PATIENT
  Sex: Female
  Weight: 85 kg

DRUGS (3)
  1. MINOCYCLINE HCL [Suspect]
     Indication: RELAPSING-REMITTING MULTIPLE SCLEROSIS
     Route: 048
     Dates: start: 20091105, end: 20100527
  2. REBIF [Suspect]
     Indication: RELAPSING-REMITTING MULTIPLE SCLEROSIS
     Dates: start: 20090909, end: 20091006
  3. REBIF [Suspect]
     Dates: start: 20091007, end: 20100526

REACTIONS (3)
  - ABORTION SPONTANEOUS [None]
  - DRUG EXPOSURE DURING PREGNANCY [None]
  - PREGNANCY [None]
